FAERS Safety Report 8598798-4 (Version None)
Quarter: 2012Q3

REPORT INFORMATION
  Report Type: 
  Country: None (occurrence: None)
  Receive Date: 20120806
  Receipt Date: 20120806
  Transmission Date: 20120928
  Serious: Yes (Other)
  Sender: FDA-Public Use
  Company Number: None

PATIENT
  Age: 56 Year
  Sex: Female
  Weight: 58.9676 kg

DRUGS (1)
  1. CYMBALTA [Suspect]
     Indication: NEURALGIA
     Dates: start: 20120515, end: 20120729

REACTIONS (4)
  - DIZZINESS [None]
  - ABNORMAL DREAMS [None]
  - RASH [None]
  - PARAESTHESIA [None]
